FAERS Safety Report 8869737 (Version 1)
Quarter: 2012Q4

REPORT INFORMATION
  Report Type: 
  Country: US (occurrence: US)
  Receive Date: 20121026
  Receipt Date: 20121026
  Transmission Date: 20130627
  Serious: No
  Sender: FDA-Public Use
  Company Number: US-AMGEN-USASP2012044096

PATIENT
  Age: 77 Year
  Sex: Female

DRUGS (14)
  1. ENBREL [Suspect]
     Indication: PRODUCT USED FOR UNKNOWN INDICATION
     Dosage: 50 mg, qwk
     Route: 058
  2. METOPROLOL TARTRATE [Concomitant]
     Dosage: 50 mg, UNK
  3. MISOPROSTOL [Concomitant]
     Dosage: 200 mug, UNK
  4. PEPCIDAC [Concomitant]
     Dosage: 20 mg, UNK
  5. CITRACAL                           /00751520/ [Concomitant]
     Dosage: UNK
  6. FOLIC ACID [Concomitant]
     Dosage: 1 mg, UNK
  7. LISINOPRIL [Concomitant]
     Dosage: 20 mg, UNK
  8. METHOTREXATE [Concomitant]
     Dosage: 2.5 mg, UNK
  9. KETOPROFEN [Concomitant]
     Dosage: 200 mg, UNK
  10. TRUSOPT S [Concomitant]
     Dosage: UNK
  11. TRAVATAN Z [Concomitant]
  12. COMBIGAN [Concomitant]
     Dosage: UNK
  13. DOXYCYCLINE [Concomitant]
     Dosage: 150 mg, UNK
  14. FLUOROMETHOLON [Concomitant]
     Dosage: UNK

REACTIONS (2)
  - Headache [Unknown]
  - Pneumonia [Recovered/Resolved]
